FAERS Safety Report 9283234 (Version 2)
Quarter: 2013Q2

REPORT INFORMATION
  Report Type: Spontaneous
  Country: US (occurrence: US)
  Receive Date: 20130510
  Receipt Date: 20130517
  Transmission Date: 20140414
  Serious: Yes (Hospitalization)
  Sender: FDA-Public Use
  Company Number: US-ELI_LILLY_AND_COMPANY-US201305000807

PATIENT
  Age: 75 Year
  Sex: Female

DRUGS (15)
  1. FORTEO [Suspect]
     Indication: OSTEOPOROSIS
     Dosage: UNK UNK, QD
     Dates: start: 20130327
  2. ASPIRIN [Concomitant]
     Indication: CARDIAC DISORDER
     Dosage: 81 MG, UNK
  3. ESTRIOL [Concomitant]
     Dosage: .5 MG, UNK
  4. METOPROLOL [Concomitant]
     Indication: BLOOD PRESSURE
     Dosage: .5 MG, UNK
  5. OMEPRAZOLE [Concomitant]
     Indication: DYSPEPSIA
     Dosage: 20 MG, UNK
  6. CALCIUM [Concomitant]
     Dosage: 600 IU, UNK
  7. COLACE [Concomitant]
     Indication: FAECES HARD
  8. VALSARTAN [Concomitant]
     Indication: BLOOD PRESSURE
     Dosage: 40 MG, UNK
  9. TRAMADOL [Concomitant]
  10. FERROUS SULFATE [Concomitant]
  11. SINGULAR [Concomitant]
     Dosage: 10 MG, UNK
  12. PRAVASTATIN [Concomitant]
     Indication: BLOOD CHOLESTEROL
     Dosage: 10 MG, UNK
  13. TYLENOL                                 /SCH/ [Concomitant]
     Dosage: 650 MG, UNK
  14. SPIRIVA [Concomitant]
     Dosage: 18 MG, UNK
     Route: 055
  15. RESTORIL [Concomitant]

REACTIONS (4)
  - Pelvic fracture [Unknown]
  - Fall [Unknown]
  - Injection site erythema [Unknown]
  - Fear [Unknown]
